FAERS Safety Report 10102200 (Version 3)
Quarter: 2014Q4

REPORT INFORMATION
  Report Type: Spontaneous
  Country: FR (occurrence: FR)
  Receive Date: 20140424
  Receipt Date: 20141027
  Transmission Date: 20150528
  Serious: Yes (Hospitalization, Other)
  Sender: FDA-Public Use
  Company Number: FR-UCBSA-119047

PATIENT
  Age: 35 Year
  Sex: Female

DRUGS (4)
  1. DEROXAT [Suspect]
     Active Substance: PAROXETINE HYDROCHLORIDE
     Dosage: 30 MG PER DAY
     Route: 048
     Dates: start: 20140108
  2. LAMICTAL [Suspect]
     Active Substance: LAMOTRIGINE
     Indication: EPILEPSY
     Dosage: 150 MG 2 PER DAY
     Route: 048
     Dates: start: 2000
  3. VIMPAT [Suspect]
     Active Substance: LACOSAMIDE
     Indication: TEMPORAL LOBE EPILEPSY
     Dosage: 300 MG, ONCE DAILY (QD), 150 MG 2 PER DAY
     Route: 048
     Dates: start: 201003, end: 201404
  4. XANAX [Suspect]
     Active Substance: ALPRAZOLAM
     Dosage: 0.25 MG SCORED TABLET, 25 MG 2 PER DAY
     Route: 048
     Dates: start: 20140108, end: 201404

REACTIONS (2)
  - Depression [Not Recovered/Not Resolved]
  - Cerebrovascular accident [Recovering/Resolving]

NARRATIVE: CASE EVENT DATE: 20140322
